FAERS Safety Report 6321928-1 (Version None)
Quarter: 2009Q3

REPORT INFORMATION
  Report Type: 
  Country: None (occurrence: None)
  Receive Date: 20090824
  Receipt Date: 20090723
  Transmission Date: 20100115
  Serious: No
  Sender: FDA-Public Use
  Company Number: US-BAYER-200928100NA

PATIENT
  Age: 34 Year
  Sex: Female
  Weight: 96 kg

DRUGS (3)
  1. MIRENA [Suspect]
     Indication: CONTRACEPTION
     Route: 015
     Dates: start: 20090722, end: 20090722
  2. MIRENA [Suspect]
     Route: 015
     Dates: start: 20090722
  3. MULTI-VITAMIN [Concomitant]

REACTIONS (1)
  - INTRA-UTERINE CONTRACEPTIVE DEVICE EXPELLED [None]
